FAERS Safety Report 7153262-4 (Version None)
Quarter: 2010Q4

REPORT INFORMATION
  Report Type: 
  Country: None (occurrence: None)
  Receive Date: 20101213
  Receipt Date: 20101203
  Transmission Date: 20110411
  Serious: Yes (Other)
  Sender: FDA-Public Use
  Company Number: JP-ROCHE-745183

PATIENT
  Age: 29 Year
  Sex: Female

DRUGS (4)
  1. CELLCEPT [Suspect]
     Indication: PROPHYLAXIS AGAINST TRANSPLANT REJECTION
     Dosage: NOTE: DOSAGE IS UNCERTAIN.
     Route: 048
  2. TACROLIMUS [Concomitant]
     Dosage: NOTE: DOSAGE IS UNCERTAIN.
     Route: 065
  3. METHYLPREDNISOLONE [Concomitant]
     Dosage: NOTE: DOSAGE IS UNCERTAIN
     Route: 065
  4. BASILIXIMAB [Concomitant]
     Dosage: NOTE: DOSAGE IS UNCERTAIN
     Route: 041

REACTIONS (1)
  - FOCAL SEGMENTAL GLOMERULOSCLEROSIS [None]
